FAERS Safety Report 6803123-2 (Version None)
Quarter: 2010Q2

REPORT INFORMATION
  Report Type: 
  Country: None (occurrence: None)
  Receive Date: 20100628
  Receipt Date: 20100618
  Transmission Date: 20101027
  Serious: Yes (Hospitalization)
  Sender: FDA-Public Use
  Company Number: A0864343A

PATIENT
  Age: 75 Year
  Sex: Male

DRUGS (1)
  1. AVANDIA [Suspect]
     Indication: DIABETES MELLITUS
     Dosage: 4MG SEE DOSAGE TEXT
     Route: 048
     Dates: start: 20010725, end: 20061015

REACTIONS (6)
  - AORTIC STENOSIS [None]
  - AORTIC VALVE DISEASE [None]
  - ATRIAL FIBRILLATION [None]
  - CARDIAC FAILURE CONGESTIVE [None]
  - CONDITION AGGRAVATED [None]
  - PULMONARY OEDEMA [None]
